FAERS Safety Report 16713299 (Version 1)
Quarter: 2019Q3

REPORT INFORMATION
  Report Type: Other
  Country: FR (occurrence: FR)
  Receive Date: 20190818
  Receipt Date: 20190818
  Transmission Date: 20191004
  Serious: Yes (Other)
  Sender: FDA-Public Use
  Company Number: FR-APOTEX-2019AP020258

PATIENT
  Age: 79 Year
  Sex: Female

DRUGS (1)
  1. PAROXETINE. [Suspect]
     Active Substance: PAROXETINE
     Indication: DEPRESSION
     Dosage: UNK
     Route: 048

REACTIONS (1)
  - Dyskinesia [Not Recovered/Not Resolved]

NARRATIVE: CASE EVENT DATE: 2018
